FAERS Safety Report 10404422 (Version 1)
Quarter: 2014Q1

REPORT INFORMATION
  Report Type: Spontaneous
  Country: US (occurrence: None)
  Receive Date: 20130815
  Receipt Date: 20130815
  Transmission Date: 20141002
  Serious: Yes (Other)
  Sender: FDA-Public Use
  Company Number: ADR-2012-02073

PATIENT
  Age: 26 Year
  Sex: Male

DRUGS (2)
  1. BACLOFEN UNKNOWN (BACLOFEN INTRATHECAL) [Suspect]
     Indication: MUSCLE SPASTICITY
  2. BACLOFEN UNKNOWN (BACLOFEN INTRATHECAL) [Suspect]
     Indication: CRANIOCEREBRAL INJURY

REACTIONS (4)
  - Muscle spasticity [None]
  - Convulsion [None]
  - Dysuria [None]
  - Incision site complication [None]
